FAERS Safety Report 7693786-4 (Version None)
Quarter: 2011Q3

REPORT INFORMATION
  Report Type: 
  Country: None (occurrence: None)
  Receive Date: 20110819
  Receipt Date: 20110808
  Transmission Date: 20111222
  Serious: Yes (Hospitalization)
  Sender: FDA-Public Use
  Company Number: BE-ELI_LILLY_AND_COMPANY-BE201108003006

PATIENT
  Age: 22 Year
  Sex: Male

DRUGS (5)
  1. OLANZAPINE [Suspect]
     Dosage: 210 MG, EVERY TWO WEEKS
     Route: 030
  2. OLANZAPINE [Suspect]
     Dosage: 300 MG, EVERY FOUR WEEKS
  3. PANTOPRAZOLE [Concomitant]
  4. DEPAKENE [Concomitant]
  5. TRAZODONE HCL [Concomitant]

REACTIONS (4)
  - PSYCHOTIC DISORDER [None]
  - WEIGHT INCREASED [None]
  - DRUG DOSE OMISSION [None]
  - DRUG WITHDRAWAL SYNDROME [None]
